FAERS Safety Report 4522355-X (Version None)
Quarter: 2004Q4

REPORT INFORMATION
  Report Type: 
  Country: None (occurrence: None)
  Receive Date: 20041116
  Receipt Date: 20040729
  Transmission Date: 20050328
  Serious: No
  Sender: FDA-Public Use
  Company Number: S04-USA-05715-01

PATIENT
  Age: 87 Year
  Sex: Male

DRUGS (10)
  1. NAMENDA [Suspect]
     Indication: DEMENTIA ALZHEIMER'S TYPE
     Dosage: 10 MG BID PO
     Route: 048
     Dates: start: 20040601
  2. NAMENDA [Suspect]
     Indication: DEMENTIA ALZHEIMER'S TYPE
     Dosage: 5 MG QD PO
     Route: 048
     Dates: start: 20040601, end: 20040601
  3. NAMENDA [Suspect]
     Indication: DEMENTIA ALZHEIMER'S TYPE
     Dosage: 5 MG BID PO
     Route: 048
     Dates: start: 20040601, end: 20040601
  4. NAMENDA [Suspect]
     Indication: DEMENTIA ALZHEIMER'S TYPE
     Dosage: 15 MG QD PO
     Route: 048
     Dates: start: 20040601, end: 20040601
  5. HYTRIN [Concomitant]
  6. MONOPRIL [Concomitant]
  7. COUMADIN [Concomitant]
  8. NEXIUM [Concomitant]
  9. PROSCAR [Concomitant]
  10. MULTIVITAMIN [Concomitant]

REACTIONS (1)
  - HEPATIC ENZYME INCREASED [None]
